FAERS Safety Report 9482854 (Version 2)
Quarter: 2013Q3

REPORT INFORMATION
  Report Type: Spontaneous
  Country: US (occurrence: US)
  Receive Date: 20130828
  Receipt Date: 20130828
  Transmission Date: 20140515
  Serious: Yes (Hospitalization)
  Sender: FDA-Public Use
  Company Number: US-AMGEN-KDL235877

PATIENT
  Age: 42 Year
  Sex: Female

DRUGS (3)
  1. ENBREL [Suspect]
     Indication: PSORIATIC ARTHROPATHY
     Dosage: 50 MG, 2 TIMES/WK
     Route: 058
     Dates: start: 20060905
  2. ENBREL [Suspect]
     Indication: PSORIASIS
  3. INSULIN [Concomitant]

REACTIONS (5)
  - Loss of consciousness [Unknown]
  - Blood glucose decreased [Unknown]
  - Pneumonia [Unknown]
  - Vertigo [Unknown]
  - Sinusitis [Recovered/Resolved]
